FAERS Safety Report 7888025-5 (Version None)
Quarter: 2011Q4

REPORT INFORMATION
  Report Type: 
  Country: None (occurrence: None)
  Receive Date: 20111103
  Receipt Date: 20111020
  Transmission Date: 20120403
  Serious: Yes (Other)
  Sender: FDA-Public Use
  Company Number: US-ELI_LILLY_AND_COMPANY-US201110006089

PATIENT
  Sex: Female

DRUGS (4)
  1. MULTI-VITAMIN [Concomitant]
  2. FISH OIL [Concomitant]
  3. EVISTA [Suspect]
     Indication: OSTEOPENIA
     Dosage: 60 MG, UNK
     Dates: start: 20080101
  4. CALCIUM VIT D [Concomitant]

REACTIONS (3)
  - RADIATION SKIN INJURY [None]
  - FEELING ABNORMAL [None]
  - BREAST CANCER IN SITU [None]
